FAERS Safety Report 24837766 (Version 2)
Quarter: 2025Q1

REPORT INFORMATION
  Report Type: Spontaneous
  Country: FR (occurrence: FR)
  Receive Date: 20250113
  Receipt Date: 20250115
  Transmission Date: 20250409
  Serious: Yes (Other)
  Sender: MERCK
  Company Number: FR-009507513-2501FRA002453

PATIENT
  Age: 53 Year
  Sex: Female

DRUGS (5)
  1. WINREVAIR [Suspect]
     Active Substance: SOTATERCEPT-CSRK
     Indication: Pulmonary arterial hypertension
     Dosage: FIRST SUBCUTANEOUS INJECTION AT 0.3 MG/KG, THEN INJECTION EVERY 3 WEEKS AT 0.7 MG/KG, INJECTION NUMB
     Route: 058
     Dates: start: 20240624
  2. BOSENTAN [Concomitant]
     Active Substance: BOSENTAN
     Dosage: 125 MILLIGRAM, MORNING AND EVENING
  3. TADALAFIL [Concomitant]
     Active Substance: TADALAFIL
     Dosage: 20 MILLIGRAM (2 TAB), QD
  4. TREPROSTINIL [Concomitant]
     Active Substance: TREPROSTINIL
     Route: 058
  5. FUROSEMIDE [Concomitant]
     Active Substance: FUROSEMIDE
     Dosage: 20 MILLIGRAM, QD

REACTIONS (1)
  - Pericardial effusion [Unknown]

NARRATIVE: CASE EVENT DATE: 20241219
